FAERS Safety Report 10235760 (Version 2)
Quarter: 2021Q1

REPORT INFORMATION
  Report Type: Spontaneous
  Country: US (occurrence: US)
  Receive Date: 20140613
  Receipt Date: 20210127
  Transmission Date: 20210419
  Serious: Yes (Other)
  Sender: FDA-Public Use
  Company Number: US-PURDUE-USA-2014-0114852

PATIENT
  Sex: Male

DRUGS (2)
  1. OXYCONTIN [Suspect]
     Active Substance: OXYCODONE HYDROCHLORIDE
     Indication: NEUROPATHY PERIPHERAL
     Dosage: UNK, UNK
     Route: 048
     Dates: start: 2007, end: 20140414
  2. OXYCONTIN [Suspect]
     Active Substance: OXYCODONE HYDROCHLORIDE
     Dosage: 40 MG, TID
     Route: 048
     Dates: start: 20140313, end: 20140414

REACTIONS (5)
  - Drug withdrawal syndrome [Unknown]
  - Upper limb fracture [Unknown]
  - Coma [Recovered/Resolved]
  - Fall [Unknown]
  - Concussion [Unknown]

NARRATIVE: CASE EVENT DATE: 2007
